FAERS Safety Report 17594492 (Version 1)
Quarter: 2020Q1

REPORT INFORMATION
  Report Type: Spontaneous
  Country: RO (occurrence: RO)
  Receive Date: 20200327
  Receipt Date: 20200327
  Transmission Date: 20200409
  Serious: Yes (Death, Life-Threatening, Hospitalization, Other)
  Sender: FDA-Public Use
  Company Number: RO-BRISTOL-MYERS SQUIBB COMPANY-BMS-2020-023324

PATIENT
  Age: 40 Year
  Sex: Male

DRUGS (2)
  1. NIVOLUMAB [Suspect]
     Active Substance: NIVOLUMAB
     Indication: COLORECTAL CANCER
     Dosage: UNK UNK, Q3WK
     Route: 065
  2. IPILIMUMAB [Suspect]
     Active Substance: IPILIMUMAB
     Indication: COLORECTAL CANCER
     Dosage: UNK UNK, Q8WK
     Route: 065

REACTIONS (8)
  - Pneumonitis [Unknown]
  - Corona virus infection [Unknown]
  - Intentional product use issue [Unknown]
  - Ascites [Unknown]
  - Anaemia [Unknown]
  - Oedema [Unknown]
  - Acute respiratory failure [Fatal]
  - Mucosal inflammation [Unknown]
